FAERS Safety Report 15525527 (Version 1)
Quarter: 2018Q4

REPORT INFORMATION
  Report Type: Spontaneous
  Country: KG (occurrence: KG)
  Receive Date: 20181019
  Receipt Date: 20181019
  Transmission Date: 20190205
  Serious: Yes (Disabling)
  Sender: FDA-Public Use
  Company Number: PHHY2018KG128707

PATIENT
  Age: 20 Year
  Sex: Female
  Weight: 54 kg

DRUGS (21)
  1. AMOKSIKLAV [Suspect]
     Active Substance: AMOXICILLIN\CLAVULANATE POTASSIUM
     Indication: DRUG RESISTANCE
     Dosage: UNK UNK, QD, 2000 (UNK)
     Route: 065
     Dates: start: 20161220, end: 20170303
  2. PYRAZINAMIDE. [Suspect]
     Active Substance: PYRAZINAMIDE
     Indication: PULMONARY TUBERCULOSIS
     Dosage: UNK UNK, QD, 1200 (UNK)
     Route: 065
     Dates: start: 20171118, end: 20180818
  3. PYRAZINAMIDE. [Suspect]
     Active Substance: PYRAZINAMIDE
     Dosage: UNK UNK, QD
     Route: 065
     Dates: start: 20120701
  4. CLOFAZIMINE [Suspect]
     Active Substance: CLOFAZIMINE
     Indication: PULMONARY TUBERCULOSIS
     Dosage: UNK (200)
     Route: 065
     Dates: start: 20180329, end: 2018
  5. CYCLOSERINE. [Concomitant]
     Active Substance: CYCLOSERINE
     Indication: PRODUCT USED FOR UNKNOWN INDICATION
     Dosage: UNK
     Route: 065
     Dates: start: 20161220, end: 20170303
  6. LINEZOLID. [Suspect]
     Active Substance: LINEZOLID
     Indication: PULMONARY TUBERCULOSIS
     Dosage: UNK UNK, QD, 600 (UNK)
     Route: 065
     Dates: start: 20170524, end: 20180818
  7. CLOFAZIMINE [Suspect]
     Active Substance: CLOFAZIMINE
     Indication: DRUG RESISTANCE
     Dosage: UNK (100)
     Route: 065
     Dates: start: 20180529, end: 20180818
  8. LINEZOLID. [Suspect]
     Active Substance: LINEZOLID
     Indication: DRUG RESISTANCE
  9. IMIPENEM/CILASTATINE [Suspect]
     Active Substance: CILASTATIN SODIUM\IMIPENEM
     Indication: DRUG RESISTANCE
  10. PYRAZINAMIDE. [Suspect]
     Active Substance: PYRAZINAMIDE
     Indication: DRUG RESISTANCE
     Dosage: UNK UNK, QD, 800(UNK)
     Route: 065
     Dates: start: 20170524, end: 201711
  11. PYRAZINAMIDE. [Suspect]
     Active Substance: PYRAZINAMIDE
     Dosage: UNK
     Route: 065
     Dates: start: 20161220, end: 20170303
  12. VITAMIN B6 [Concomitant]
     Active Substance: PYRIDOXINE HYDROCHLORIDE
     Indication: PRODUCT USED FOR UNKNOWN INDICATION
     Dosage: 50 MG, UNK
     Route: 065
     Dates: start: 20170524
  13. BEDAQUILINE [Concomitant]
     Active Substance: BEDAQUILINE
     Dosage: UNK
     Route: 065
     Dates: start: 20170607, end: 20171031
  14. AMOKSIKLAV [Suspect]
     Active Substance: AMOXICILLIN\CLAVULANATE POTASSIUM
     Indication: PULMONARY TUBERCULOSIS
     Dosage: UNK UNK, QD, 2000 (UNK)
     Route: 065
     Dates: start: 20170524, end: 20180818
  15. DELAMANID [Suspect]
     Active Substance: DELAMANID
     Indication: PULMONARY TUBERCULOSIS
     Dosage: UNK UNK, QD 200 (UNK)
     Route: 065
     Dates: start: 20180329, end: 20180808
  16. BEDAQUILINE [Concomitant]
     Active Substance: BEDAQUILINE
     Dosage: UNK
     Route: 065
     Dates: start: 20171201, end: 20180329
  17. IMIPENEM/CILASTATINE [Suspect]
     Active Substance: CILASTATIN SODIUM\IMIPENEM
     Indication: PULMONARY TUBERCULOSIS
     Dosage: UNK UNK, QD, 2000 MG (UNK)
     Route: 065
     Dates: start: 20170524, end: 20180818
  18. BEDAQUILINE [Concomitant]
     Active Substance: BEDAQUILINE
     Indication: PRODUCT USED FOR UNKNOWN INDICATION
     Dosage: UNK
     Route: 065
     Dates: start: 20170524, end: 201706
  19. DELAMANID [Suspect]
     Active Substance: DELAMANID
     Indication: DRUG RESISTANCE
  20. CLOFAZIMINE [Suspect]
     Active Substance: CLOFAZIMINE
     Dosage: UNK
     Route: 065
     Dates: start: 20161220, end: 20170303
  21. CYCLOSERINE. [Concomitant]
     Active Substance: CYCLOSERINE
     Dosage: UNK
     Route: 065
     Dates: start: 20171201, end: 20180329

REACTIONS (3)
  - Neuropathy peripheral [Unknown]
  - Vomiting [Unknown]
  - Platelet count decreased [Unknown]

NARRATIVE: CASE EVENT DATE: 20180330
